FAERS Safety Report 17329510 (Version 1)
Quarter: 2020Q1

REPORT INFORMATION
  Report Type: Spontaneous
  Country: US (occurrence: US)
  Receive Date: 20200110
  Receipt Date: 20200110
  Transmission Date: 20200409
  Serious: Yes (Hospitalization)
  Sender: FDA-Public Use
  Company Number: None

PATIENT
  Age: 63 Year
  Sex: Male
  Weight: 100.24 kg

DRUGS (8)
  1. ENZALUTAMIDE [Suspect]
     Active Substance: ENZALUTAMIDE
     Indication: PROSTATE CANCER
     Route: 048
     Dates: start: 20160328, end: 20161011
  2. TAXOTERE [Concomitant]
     Active Substance: DOCETAXEL
  3. PROVENGE [Concomitant]
     Active Substance: SIPULEUCEL-T
  4. ZYTIGA [Concomitant]
     Active Substance: ABIRATERONE ACETATE
  5. XOFIGO [Concomitant]
     Active Substance: RADIUM RA-223 DICHLORIDE
  6. XTANDI [Concomitant]
     Active Substance: ENZALUTAMIDE
  7. ELIGARD [Concomitant]
     Active Substance: LEUPROLIDE ACETATE
  8. ALEVE [Concomitant]
     Active Substance: NAPROXEN SODIUM

REACTIONS (7)
  - Disease progression [None]
  - Paraesthesia [None]
  - Neck pain [None]
  - Spinal cord compression [None]
  - Intervertebral disc protrusion [None]
  - Musculoskeletal pain [None]
  - Hypoaesthesia [None]

NARRATIVE: CASE EVENT DATE: 20200108
